FAERS Safety Report 11863840 (Version 11)
Quarter: 2016Q3

REPORT INFORMATION
  Report Type: Report from Study
  Country: US (occurrence: US)
  Receive Date: 20151223
  Receipt Date: 20160801
  Transmission Date: 20161109
  Serious: Yes (Hospitalization, Other)
  Sender: FDA-Public Use
  Company Number: US-BAYER-2015-491573

PATIENT
  Age: 33 Year
  Sex: Female
  Weight: 54.88 kg

DRUGS (12)
  1. ADEMPAS [Suspect]
     Active Substance: RIOCIGUAT
     Indication: PULMONARY HYPERTENSION
     Dosage: UNK
     Dates: start: 20160517
  2. OPSUMIT [Concomitant]
     Active Substance: MACITENTAN
  3. ADEMPAS [Suspect]
     Active Substance: RIOCIGUAT
     Indication: PULMONARY HYPERTENSION
     Dosage: 1 MG, TID
     Route: 048
     Dates: start: 20151222
  4. TRACLEER [Concomitant]
     Active Substance: BOSENTAN
  5. ADEMPAS [Suspect]
     Active Substance: RIOCIGUAT
     Indication: PULMONARY HYPERTENSION
     Dosage: UNK
     Route: 048
     Dates: start: 20151222
  6. ADEMPAS [Suspect]
     Active Substance: RIOCIGUAT
     Indication: PULMONARY HYPERTENSION
     Dosage: 1 MG, TID
     Route: 048
  7. ADEMPAS [Suspect]
     Active Substance: RIOCIGUAT
     Indication: PULMONARY HYPERTENSION
     Dosage: 0.5 MG, TID
     Route: 048
     Dates: start: 20151209
  8. ADEMPAS [Suspect]
     Active Substance: RIOCIGUAT
     Indication: PULMONARY HYPERTENSION
     Dosage: 1.0 MG, TID
     Route: 048
  9. UPTRAVI [Concomitant]
     Active Substance: SELEXIPAG
  10. ADEMPAS [Suspect]
     Active Substance: RIOCIGUAT
     Indication: PULMONARY HYPERTENSION
     Dosage: 1.5 MG, TID
     Route: 048
  11. ADEMPAS [Suspect]
     Active Substance: RIOCIGUAT
     Indication: PULMONARY HYPERTENSION
     Dosage: 1 MG, TID
     Route: 048
  12. ADEMPAS [Suspect]
     Active Substance: RIOCIGUAT
     Indication: PULMONARY HYPERTENSION
     Dosage: 0.5 MG, TID
     Route: 048

REACTIONS (36)
  - Vision blurred [None]
  - Cough [Unknown]
  - Headache [None]
  - Pain [Unknown]
  - Paraesthesia [Unknown]
  - Pyrexia [None]
  - Chest pain [Unknown]
  - Myalgia [Unknown]
  - Abdominal discomfort [Unknown]
  - Blood pressure decreased [None]
  - Gallbladder disorder [Unknown]
  - Dyspnoea [Unknown]
  - Headache [Unknown]
  - Arthralgia [Unknown]
  - Constipation [Unknown]
  - Heart rate increased [Unknown]
  - Pain in extremity [Unknown]
  - Memory impairment [Unknown]
  - Dyspnoea exertional [None]
  - Adverse drug reaction [None]
  - Nausea [Unknown]
  - Hypoaesthesia [Unknown]
  - Amnesia [Unknown]
  - Chest pain [Not Recovered/Not Resolved]
  - Palpitations [None]
  - Hospitalisation [Unknown]
  - Dizziness [Unknown]
  - Fatigue [None]
  - Oedema peripheral [Unknown]
  - Abdominal distension [Unknown]
  - Neuropathy peripheral [Unknown]
  - Retching [Unknown]
  - Dizziness postural [None]
  - Palpitations [Unknown]
  - Vomiting [Unknown]
  - Unevaluable event [Unknown]
